FAERS Safety Report 5909008-8 (Version None)
Quarter: 2008Q4

REPORT INFORMATION
  Report Type: 
  Country: None (occurrence: None)
  Receive Date: 20081006
  Receipt Date: 20080924
  Transmission Date: 20090506
  Serious: Yes (Hospitalization)
  Sender: FDA-Public Use
  Company Number: US-ROCHE-587087

PATIENT
  Age: 61 Year
  Sex: Female

DRUGS (9)
  1. MYCOPHENOLATE MOFETIL [Suspect]
     Route: 065
  2. GANCICLOVIR [Suspect]
     Route: 065
  3. TACROLIMUS [Suspect]
     Route: 065
  4. FLUDROCORTISONE ACETATE [Concomitant]
     Route: 065
  5. VORICONAZOLE [Concomitant]
     Route: 065
  6. TRAMADOL HCL [Concomitant]
     Route: 065
  7. ALENDRONATE SODIUM [Concomitant]
     Route: 065
  8. CITALOPRAM HYDROBROMIDE [Concomitant]
     Route: 065
  9. DARBEPOETIN ALFA [Concomitant]
     Route: 065

REACTIONS (1)
  - THROMBOTIC THROMBOCYTOPENIC PURPURA [None]
